FAERS Safety Report 9707999 (Version 4)
Quarter: 2014Q4

REPORT INFORMATION
  Report Type: Report from Study
  Country: US (occurrence: US)
  Receive Date: 20131125
  Receipt Date: 20141031
  Transmission Date: 20150529
  Serious: Yes (Hospitalization, Other)
  Sender: FDA-Public Use
  Company Number: US-BAYER-2013-140308

PATIENT
  Age: 64 Year
  Sex: Male

DRUGS (3)
  1. STIVARGA [Suspect]
     Active Substance: REGORAFENIB
     Indication: NEOPLASM MALIGNANT
     Dosage: 120 MG DAILY
     Route: 048
     Dates: start: 201308
  2. STIVARGA [Suspect]
     Active Substance: REGORAFENIB
     Indication: NEOPLASM MALIGNANT
     Dosage: 160 MG DAILY
     Route: 048
     Dates: start: 201306
  3. STIVARGA [Suspect]
     Active Substance: REGORAFENIB
     Indication: NEOPLASM MALIGNANT
     Dosage: 2 TABLETS ALTERNATED WITH 3 TABLETS DAILY
     Route: 048
     Dates: start: 201310

REACTIONS (10)
  - Blood pressure increased [Recovered/Resolved]
  - Skin exfoliation [None]
  - Eyelid ptosis [Not Recovered/Not Resolved]
  - Constipation [Recovered/Resolved]
  - Pain in extremity [Recovered/Resolved]
  - Vision blurred [Not Recovered/Not Resolved]
  - Skin tightness [Recovered/Resolved]
  - Palmar-plantar erythrodysaesthesia syndrome [None]
  - Limb discomfort [None]
  - Fatigue [None]

NARRATIVE: CASE EVENT DATE: 20130601
